FAERS Safety Report 22018673 (Version 1)
Quarter: 2023Q1

REPORT INFORMATION
  Report Type: Spontaneous
  Country: PT (occurrence: PT)
  Receive Date: 20230222
  Receipt Date: 20230222
  Transmission Date: 20230418
  Serious: Yes (Hospitalization, Disabling, Other)
  Sender: FDA-Public Use
  Company Number: PT-EMA-20170314-vsevhpdd-131533176

PATIENT
  Age: 85 Year
  Sex: Male

DRUGS (1)
  1. AMOXICILLIN\CLAVULANIC ACID [Suspect]
     Active Substance: AMOXICILLIN\CLAVULANIC ACID
     Indication: Respiratory tract infection
     Dosage: UNK
     Route: 048

REACTIONS (6)
  - Toxic epidermal necrolysis [Unknown]
  - Dyspnoea [Unknown]
  - Respiratory failure [Unknown]
  - Renal impairment [Unknown]
  - Hyperlactacidaemia [Unknown]
  - Skin lesion [Unknown]
